FAERS Safety Report 9132698 (Version 5)
Quarter: 2013Q4

REPORT INFORMATION
  Report Type: Report from Study
  Country: JP (occurrence: JP)
  Receive Date: 20130301
  Receipt Date: 20131127
  Transmission Date: 20140711
  Serious: Yes (Hospitalization)
  Sender: FDA-Public Use
  Company Number: JP-ROCHE-1196510

PATIENT
  Age: 55 Year
  Sex: Female
  Weight: 45 kg

DRUGS (13)
  1. TOCILIZUMAB [Suspect]
     Indication: RHEUMATOID ARTHRITIS
     Route: 041
     Dates: start: 20120319, end: 20130201
  2. ARAVA [Concomitant]
     Route: 048
  3. PROGRAF [Concomitant]
     Route: 048
     Dates: start: 20120814
  4. MAGMITT [Concomitant]
     Indication: CONSTIPATION
     Dosage: DOSAGE IS UNCERTAIN.
     Route: 048
  5. HYPEN [Concomitant]
     Indication: RHEUMATOID ARTHRITIS
     Dosage: DOSAGE IS UNCERTAIN.
     Route: 048
     Dates: end: 20120909
  6. HIRUDOID (JAPAN) [Concomitant]
     Indication: SCLERODACTYLIA
     Dosage: DOSAGE IS UNCERTAIN.
     Route: 061
     Dates: end: 20121206
  7. PARIET [Concomitant]
     Indication: GASTROOESOPHAGEAL REFLUX DISEASE
     Dosage: DOSAGE IS UNCERTAIN.
     Route: 048
  8. GASLON N [Concomitant]
     Indication: PROPHYLAXIS
     Dosage: DOSAGE IS UNCERTAIN.
     Route: 048
  9. MYSLEE [Concomitant]
     Indication: INSOMNIA
     Dosage: DOSAGE IS UNCERTAIN.
     Route: 048
     Dates: end: 20120716
  10. HALCION [Concomitant]
     Indication: INSOMNIA
     Dosage: DOSAGE IS UNCERTAIN.
     Route: 048
     Dates: start: 20120717
  11. KERATINAMIN [Concomitant]
     Dosage: DOSAGE IS UNCERTAIN.
     Route: 065
     Dates: start: 20121106, end: 20121206
  12. CELECOX [Concomitant]
     Indication: RHEUMATOID ARTHRITIS
     Dosage: DOSAGE IS UNCERTAIN.
     Route: 048
     Dates: start: 20120910, end: 20121206
  13. VOLTAREN SR [Concomitant]
     Indication: RHEUMATOID ARTHRITIS
     Dosage: DOSAGE IS UNCERTAIN.
     Route: 048
     Dates: start: 20121207

REACTIONS (6)
  - Weight decreased [Unknown]
  - Hypoaesthesia [Recovering/Resolving]
  - Pain in extremity [Recovering/Resolving]
  - Tremor [Not Recovered/Not Resolved]
  - Drug ineffective [Recovering/Resolving]
  - Restless legs syndrome [Not Recovered/Not Resolved]
